FAERS Safety Report 9516231 (Version 1)
Quarter: 2013Q1

REPORT INFORMATION
  Report Type: Spontaneous
  Country: US (occurrence: None)
  Receive Date: 20130305
  Receipt Date: 20130305
  Transmission Date: 20140127
  Serious: Yes (Other)
  Sender: FDA-Public Use
  Company Number: 163-21880-12080517

PATIENT
  Age: 76 Year
  Sex: Male
  Weight: 88.91 kg

DRUGS (19)
  1. REVLIMID [Suspect]
     Dosage: 10 MG, 21 IN 28 D, PO
     Route: 048
     Dates: start: 20100610
  2. ACYCLOVIR (ACICLOVIR) [Concomitant]
  3. ASPIRIN (ACETYLSALICYLIC ACID) [Concomitant]
  4. ATENOLOL (ATENOLOL) [Concomitant]
  5. VITAMIN B-12 (CYANOCOBALAMIN) [Concomitant]
  6. CIPROFLOXACIN (CIPROFLOXACIN) [Concomitant]
  7. DEXAMETHASONE (DEXAMETHASONE) [Concomitant]
  8. FERROUS GLUCONATE (FERROUS GLUCONATE) [Concomitant]
  9. HYDROCHLOROTHIAZIDE (HYDROCHLOROTHIAZIDE) [Concomitant]
  10. LORAZEPAM (LORAZEPAM) [Concomitant]
  11. MIRALAX [Concomitant]
  12. VITAMINS [Concomitant]
  13. NORVASC (AMLODIPINE BESILATE) [Concomitant]
  14. OMEGA 3 (FISH OIL) [Concomitant]
  15. PROTONIX [Concomitant]
  16. SENNA [Concomitant]
  17. SIMVASTATIN (SIMVASTATIN) [Concomitant]
  18. ZOMETA (ZOLEDRONIC ACID) [Concomitant]
  19. LISINOPRIL (LISINOPRIL) [Concomitant]

REACTIONS (2)
  - Blood creatinine increased [None]
  - Blood urea increased [None]
